FAERS Safety Report 8723175 (Version 2)
Quarter: 2013Q3

REPORT INFORMATION
  Report Type: Spontaneous
  Country: US (occurrence: US)
  Receive Date: 20120814
  Receipt Date: 20130913
  Transmission Date: 20140515
  Serious: No
  Sender: FDA-Public Use
  Company Number: US-UCBSA-063338

PATIENT
  Age: 25 Year
  Sex: Female

DRUGS (1)
  1. VIMPAT [Suspect]
     Indication: CONVULSION
     Dosage: DRUG STRENGTH: 150MG

REACTIONS (1)
  - Convulsion [Unknown]
